FAERS Safety Report 23417057 (Version 6)
Quarter: 2024Q4

REPORT INFORMATION
  Report Type: Spontaneous
  Country: US (occurrence: US)
  Receive Date: 20240118
  Receipt Date: 20241122
  Transmission Date: 20250114
  Serious: Yes (Other)
  Sender: PFIZER
  Company Number: US-PFIZER INC-PV202400003847

PATIENT
  Age: 70 Year
  Sex: Female

DRUGS (2)
  1. PREMARIN [Suspect]
     Active Substance: ESTROGENS, CONJUGATED
     Indication: Hormone replacement therapy
     Dosage: ONE TABLET DAILY
     Dates: start: 1992
  2. PREMARIN [Suspect]
     Active Substance: ESTROGENS, CONJUGATED
     Dosage: 1.25 MG, DAILY

REACTIONS (5)
  - Skin cancer [Recovered/Resolved]
  - COVID-19 [Recovered/Resolved]
  - Illness [Not Recovered/Not Resolved]
  - Cough [Unknown]
  - Influenza [Not Recovered/Not Resolved]
